FAERS Safety Report 8329201-7 (Version None)
Quarter: 2012Q2

REPORT INFORMATION
  Report Type: 
  Country: None (occurrence: None)
  Receive Date: 20120502
  Receipt Date: 20120308
  Transmission Date: 20120825
  Serious: No
  Sender: FDA-Public Use
  Company Number: US-ASTRAZENECA-2012SE16372

PATIENT
  Age: 66 Year
  Sex: Female
  Weight: 59 kg

DRUGS (4)
  1. FASLODEX [Suspect]
     Indication: BREAST CANCER
     Route: 030
  2. NEXIUM [Suspect]
     Route: 048
  3. CARISOPRODOL [Concomitant]
  4. TRAMADOL HCL [Concomitant]
     Indication: PAIN

REACTIONS (1)
  - ALOPECIA [None]
